FAERS Safety Report 8403360-X (Version None)
Quarter: 2012Q2

REPORT INFORMATION
  Report Type: 
  Country: None (occurrence: None)
  Receive Date: 20120601
  Receipt Date: 20120530
  Transmission Date: 20120825
  Serious: No
  Sender: FDA-Public Use
  Company Number: US-PFIZER INC-2012096022

PATIENT
  Sex: Male
  Weight: 83.9 kg

DRUGS (3)
  1. PHENERGAN [Concomitant]
     Indication: MIGRAINE
     Dosage: UNK
  2. CHANTIX [Suspect]
     Indication: SMOKING CESSATION THERAPY
     Dosage: 0.5 MG DAILY
     Route: 048
     Dates: start: 20120410, end: 20120412
  3. CHANTIX [Suspect]
     Dosage: 0.5 MG, 2X/DAY
     Route: 048
     Dates: start: 20120413

REACTIONS (3)
  - EATING DISORDER [None]
  - NAUSEA [None]
  - ABDOMINAL DISCOMFORT [None]
